FAERS Safety Report 5873101-9 (Version None)
Quarter: 2008Q3

REPORT INFORMATION
  Report Type: 
  Country: None (occurrence: None)
  Receive Date: 20080902
  Receipt Date: 20080820
  Transmission Date: 20090109
  Serious: Yes (Other)
  Sender: FDA-Public Use
  Company Number: CHPA2008GB13886

PATIENT
  Sex: Female

DRUGS (3)
  1. SCOPOLAMINE [Suspect]
     Indication: SALIVARY HYPERSECRETION
     Dosage: 3 MG, Q72H, TRANSDERMAL, 3 MG, Q72H, TRANSDERMAL
     Route: 062
     Dates: start: 20080801, end: 20080818
  2. SCOPOLAMINE [Suspect]
     Indication: SALIVARY HYPERSECRETION
     Dosage: 3 MG, Q72H, TRANSDERMAL, 3 MG, Q72H, TRANSDERMAL
     Route: 062
     Dates: start: 20080501
  3. ASPIRIN [Concomitant]

REACTIONS (5)
  - ABNORMAL DREAMS [None]
  - HALLUCINATION, VISUAL [None]
  - OFF LABEL USE [None]
  - OVERDOSE [None]
  - SOMNAMBULISM [None]
